FAERS Safety Report 25484546 (Version 1)
Quarter: 2025Q2

REPORT INFORMATION
  Report Type: Spontaneous
  Country: US (occurrence: None)
  Receive Date: 20250626
  Receipt Date: 20250626
  Transmission Date: 20250717
  Serious: Yes (Hospitalization)
  Sender: FDA-CTU
  Company Number: None

PATIENT
  Age: 94 Year
  Sex: Female
  Weight: 63 kg

DRUGS (3)
  1. EVENITY [Suspect]
     Active Substance: ROMOSOZUMAB-AQQG
     Indication: Osteoporosis
     Route: 058
     Dates: start: 20250626, end: 20250626
  2. LEVOTHYROXINE SODIUM [Concomitant]
     Active Substance: LEVOTHYROXINE SODIUM
  3. PREGABALIN [Concomitant]
     Active Substance: PREGABALIN

REACTIONS (5)
  - Pallor [None]
  - Dyspnoea [None]
  - Headache [None]
  - Heart rate irregular [None]
  - Nasal congestion [None]

NARRATIVE: CASE EVENT DATE: 20250626
